FAERS Safety Report 10223376 (Version 2)
Quarter: 2014Q2

REPORT INFORMATION
  Report Type: Spontaneous
  Country: US (occurrence: US)
  Receive Date: 20140609
  Receipt Date: 20140609
  Transmission Date: 20141212
  Serious: No
  Sender: FDA-Public Use
  Company Number: US-DRREDDYS-USA/USA/13/0030269

PATIENT
  Age: 64 Year
  Sex: Male
  Weight: 107.5 kg

DRUGS (4)
  1. FEXOFENADINE HCL  OTC [Suspect]
     Indication: UPPER RESPIRATORY TRACT INFECTION
     Route: 048
     Dates: start: 20130619
  2. FEXOFENADINE HCL  OTC [Suspect]
     Indication: UPPER-AIRWAY COUGH SYNDROME
  3. TUSSIN DM [Suspect]
     Indication: UPPER RESPIRATORY TRACT INFECTION
     Route: 048
     Dates: start: 20130619
  4. TUSSIN DM [Suspect]
     Indication: UPPER-AIRWAY COUGH SYNDROME

REACTIONS (1)
  - Fatigue [Recovered/Resolved]
